FAERS Safety Report 11490451 (Version 1)
Quarter: 2015Q3

REPORT INFORMATION
  Report Type: Spontaneous
  Country: US (occurrence: US)
  Receive Date: 20150909
  Receipt Date: 20150909
  Transmission Date: 20151125
  Serious: Yes (Other)
  Sender: FDA-Public Use
  Company Number: US-MALLINCKRODT-T201403944

PATIENT
  Age: 82 Year
  Sex: Female
  Weight: 45.81 kg

DRUGS (1)
  1. MD-GASTROVIEW [Suspect]
     Active Substance: DIATRIZOATE MEGLUMINE\DIATRIZOATE SODIUM
     Indication: IMAGING PROCEDURE
     Dosage: UNK, SINGLE
     Route: 048
     Dates: start: 20141029, end: 20141029

REACTIONS (1)
  - Aspiration [Unknown]

NARRATIVE: CASE EVENT DATE: 201410
